FAERS Safety Report 12550163 (Version 1)
Quarter: 2016Q3

REPORT INFORMATION
  Report Type: Spontaneous
  Country: JP (occurrence: JP)
  Receive Date: 20160712
  Receipt Date: 20160712
  Transmission Date: 20161109
  Serious: Yes (Death, Other)
  Sender: FDA-Public Use
  Company Number: JP-ELI_LILLY_AND_COMPANY-JP201607002020

PATIENT
  Age: 52 Year
  Sex: Female

DRUGS (2)
  1. CISPLATIN. [Suspect]
     Active Substance: CISPLATIN
     Indication: PERITONEAL MESOTHELIOMA MALIGNANT
     Dosage: 75 MG/M2, UNK
     Route: 065
  2. ALIMTA [Suspect]
     Active Substance: PEMETREXED DISODIUM
     Indication: PERITONEAL MESOTHELIOMA MALIGNANT
     Dosage: 500 MG/M2, UNK
     Route: 042

REACTIONS (5)
  - General physical health deterioration [Unknown]
  - Off label use [Unknown]
  - Malignant neoplasm progression [Fatal]
  - Haematotoxicity [Unknown]
  - Ileus paralytic [Unknown]
